FAERS Safety Report 10367872 (Version 1)
Quarter: 2014Q3

REPORT INFORMATION
  Report Type: Spontaneous
  Country: US (occurrence: None)
  Receive Date: 20140806
  Receipt Date: 20140806
  Transmission Date: 20150326
  Serious: Yes (Other)
  Sender: FDA-Public Use
  Company Number: None

PATIENT
  Age: 65 Year
  Sex: Male
  Weight: 74.84 kg

DRUGS (1)
  1. MAXALT [Suspect]
     Active Substance: RIZATRIPTAN BENZOATE
     Indication: MIGRAINE
     Dosage: 1 AS NEEDED TAKEN BY MOUTH
     Route: 048

REACTIONS (11)
  - Chills [None]
  - Flatulence [None]
  - Depression [None]
  - Anxiety [None]
  - Pollakiuria [None]
  - Sleep disorder [None]
  - Diarrhoea [None]
  - Agitation [None]
  - Eczema [None]
  - Eye irritation [None]
  - Morton^s neuralgia [None]

NARRATIVE: CASE EVENT DATE: 20131009
